FAERS Safety Report 4328416-2 (Version None)
Quarter: 2004Q1

REPORT INFORMATION
  Report Type: 
  Country: None (occurrence: None)
  Receive Date: 20040325
  Receipt Date: 20030707
  Transmission Date: 20041129
  Serious: Yes (Death, Hospitalization)
  Sender: FDA-Public Use
  Company Number: TAP2002Q02797

PATIENT
  Age: 70 Year
  Sex: Male
  Weight: 101.1521 kg

DRUGS (4)
  1. LUPRON DEPOT [Suspect]
     Indication: PROSTATE CANCER
     Dosage: 7.5 MG, 1 IN 1 M, INTRAMUSCULAR
     Route: 030
     Dates: start: 19901001
  2. CASODEX [Concomitant]
  3. KETOCONAZOLE [Concomitant]
  4. HYDROCORT (HYDROCORTISONE ACETATE) [Concomitant]

REACTIONS (10)
  - ASTHENIA [None]
  - BACK PAIN [None]
  - BREAST MASS [None]
  - CELLULITIS [None]
  - CERVICAL VERTEBRAL FRACTURE [None]
  - COMPUTERISED TOMOGRAM ABNORMAL [None]
  - DYSPNOEA [None]
  - GYNAECOMASTIA [None]
  - PROSTATIC SPECIFIC ANTIGEN INCREASED [None]
  - THROMBOSIS [None]
